FAERS Safety Report 14023572 (Version 3)
Quarter: 2018Q3

REPORT INFORMATION
  Report Type: Spontaneous
  Country: JP (occurrence: JP)
  Receive Date: 20170929
  Receipt Date: 20180905
  Transmission Date: 20181010
  Serious: Yes (Death, Other)
  Sender: FDA-Public Use
  Company Number: JP-BAYER-2017-179258

PATIENT
  Age: 59 Year
  Sex: Female
  Weight: 48 kg

DRUGS (9)
  1. OXYCONTIN [Concomitant]
     Active Substance: OXYCODONE HYDROCHLORIDE
     Indication: ANALGESIC THERAPY
     Dosage: DAILY DOSE 20 MG
     Route: 048
     Dates: start: 20170829, end: 20170906
  2. STIVARGA [Suspect]
     Active Substance: REGORAFENIB
     Indication: HEPATOCELLULAR CARCINOMA
     Dosage: 80 MG, QD
     Route: 048
     Dates: start: 20170713, end: 20170906
  3. BIO?THREE [Concomitant]
     Active Substance: HERBALS
     Indication: PROPHYLAXIS
     Dosage: UNK
     Route: 048
     Dates: start: 20150630, end: 20170906
  4. OXINORM [ORGOTEIN] [Concomitant]
     Indication: ANALGESIC THERAPY
     Dosage: UNK
     Route: 048
     Dates: start: 20170821, end: 20170906
  5. LAC?B [Concomitant]
     Active Substance: BIFIDOBACTERIUM SPP.
     Indication: PROPHYLAXIS
     Dosage: 1?3G
     Route: 048
     Dates: start: 20170826, end: 20170906
  6. MAGNESIUM OXIDE. [Concomitant]
     Active Substance: MAGNESIUM OXIDE
     Indication: CONSTIPATION
     Dosage: DAILY DOSE 1500 MG
     Route: 048
     Dates: start: 20170825, end: 20170906
  7. BARACLUDE [Concomitant]
     Active Substance: ENTECAVIR
     Indication: HEPATITIS B
     Dosage: DAILY DOSE 1 MG
     Route: 048
     Dates: start: 20150115, end: 20170906
  8. ACETAMINOPHEN. [Concomitant]
     Active Substance: ACETAMINOPHEN
     Indication: ANTIPYRESIS
     Dosage: 0.5?1.5G
     Route: 048
     Dates: start: 20170825, end: 20170906
  9. METOCLOPRAMIDE. [Concomitant]
     Active Substance: METOCLOPRAMIDE
     Indication: NAUSEA
     Dosage: 5?15MG/?
     Route: 048
     Dates: start: 20161201, end: 20170906

REACTIONS (7)
  - Haemothorax [Fatal]
  - Shock haemorrhagic [Fatal]
  - Fall [None]
  - Metastases to bone [None]
  - Hyperhidrosis [None]
  - Metastases to bone [Fatal]
  - Hepatocellular carcinoma [None]

NARRATIVE: CASE EVENT DATE: 20170821
